FAERS Safety Report 21297200 (Version 4)
Quarter: 2022Q3

REPORT INFORMATION
  Report Type: Report from Study
  Country: JP (occurrence: JP)
  Receive Date: 20220906
  Receipt Date: 20220920
  Transmission Date: 20221027
  Serious: Yes (Hospitalization)
  Sender: FDA-Public Use
  Company Number: JP-CHUGAI-2021005078AA

PATIENT
  Age: 58 Year
  Sex: Female
  Weight: 77.1 kg

DRUGS (26)
  1. ATEZOLIZUMAB [Suspect]
     Active Substance: ATEZOLIZUMAB
     Indication: Breast cancer
     Dosage: MOST RECENT DOSE OF ATEZOLIZUMAB: 02/JUN/2021
     Route: 042
     Dates: start: 20210324
  2. ATEZOLIZUMAB [Suspect]
     Active Substance: ATEZOLIZUMAB
     Indication: Breast cancer
  3. BEVACIZUMAB [Suspect]
     Active Substance: BEVACIZUMAB
     Indication: Breast cancer
     Route: 041
     Dates: start: 20210324
  4. BEVACIZUMAB [Suspect]
     Active Substance: BEVACIZUMAB
     Route: 042
     Dates: start: 20210407, end: 20220817
  5. PACLITAXEL [Suspect]
     Active Substance: PACLITAXEL
     Indication: Breast cancer
     Dosage: 90 MILLIGRAM/SQ. METER, ONCE/2WEEKS
     Route: 042
     Dates: start: 20210324, end: 20220824
  6. PACLITAXEL [Suspect]
     Active Substance: PACLITAXEL
     Indication: Breast cancer
  7. DEXAMETHASONE SODIUM PHOSPHATE [Suspect]
     Active Substance: DEXAMETHASONE SODIUM PHOSPHATE
     Indication: Prophylaxis
     Dosage: 3.3 MILLIGRAM, QD
     Route: 042
     Dates: start: 20210407, end: 20220824
  8. CELECOXIB [Suspect]
     Active Substance: CELECOXIB
     Indication: Impetigo
     Dosage: 200 MILLIGRAM, BID
     Route: 048
     Dates: start: 20220824, end: 20220828
  9. NIFEDIPINE [Concomitant]
     Active Substance: NIFEDIPINE
     Indication: Hypertension
     Dosage: 20 MILLIGRAM, BID
     Route: 048
     Dates: end: 20220828
  10. TELMISARTAN [Concomitant]
     Active Substance: TELMISARTAN
     Indication: Hypertension
     Dosage: 20 MILLIGRAM, QD
     Route: 048
     Dates: end: 20220828
  11. HEPARINOID [Concomitant]
     Indication: Dry skin
     Dosage: UNK UNK, PRN
     Route: 061
  12. MAGNESIUM OXIDE [Concomitant]
     Active Substance: MAGNESIUM OXIDE
     Indication: Prophylaxis
     Dosage: 330 MILLIGRAM, PRN
     Route: 048
     Dates: end: 20220828
  13. ACETAMINOPHEN [Concomitant]
     Active Substance: ACETAMINOPHEN
     Indication: Tumour pain
     Dosage: 500 MILLIGRAM, TID
     Route: 048
     Dates: end: 20220828
  14. PARAFFIN [Concomitant]
     Active Substance: PARAFFIN
     Indication: Prophylaxis
     Dosage: UNK UNK, PRN
     Route: 061
     Dates: start: 20210323
  15. POLARAMINE [Concomitant]
     Active Substance: DEXCHLORPHENIRAMINE MALEATE
     Indication: Prophylaxis
     Dosage: 5 MILLIGRAM, QD
     Route: 042
     Dates: start: 20210324, end: 20220824
  16. FAMOTIDINE [Concomitant]
     Active Substance: FAMOTIDINE
     Indication: Prophylaxis
     Dosage: 20 MILLIGRAM, QD
     Route: 042
     Dates: start: 20210324, end: 20220824
  17. ROZEX [METRONIDAZOLE] [Concomitant]
     Indication: Prophylaxis
     Dosage: UNK UNK, PRN
     Route: 061
     Dates: start: 20210507
  18. HACHIAZULE [SODIUM BICARBONATE;SODIUM GUALENATE] [Concomitant]
     Indication: Stomatitis
     Dosage: 2 GRAM, PRN
     Route: 002
     Dates: start: 20210507
  19. FUROSEMIDE [Concomitant]
     Active Substance: FUROSEMIDE
     Indication: Oedema peripheral
     Dosage: 40 MILLIGRAM, QD
     Route: 048
     Dates: start: 20210623, end: 20220828
  20. ZINC [Concomitant]
     Active Substance: ZINC
     Indication: Taste disorder
     Dosage: 50 MILLIGRAM, TID
     Route: 048
     Dates: start: 20211020, end: 20220828
  21. MIROGABALIN BESYLATE [Concomitant]
     Active Substance: MIROGABALIN BESYLATE
     Indication: Neuropathy peripheral
     Dosage: 5 MILLIGRAM, BID
     Route: 048
     Dates: start: 20211117, end: 20220828
  22. SPIRONOLACTONE [Concomitant]
     Active Substance: SPIRONOLACTONE
     Indication: Oedema peripheral
     Dosage: 25 MILLIGRAM, QD
     Route: 048
     Dates: start: 20111117, end: 20220828
  23. LOXOPROFEN SODIUM [Concomitant]
     Active Substance: LOXOPROFEN SODIUM
     Indication: Back pain
     Dosage: 100 MILLIGRAM, PRN
     Route: 062
     Dates: start: 20220209
  24. LOXOPROFEN SODIUM [Concomitant]
     Active Substance: LOXOPROFEN SODIUM
     Indication: Cervicobrachial syndrome
  25. CALCIUM CARBONATE;CINNAMOMUM VERUM POWDER;COPTIS TRIFOLIA;DIASTASE, TA [Concomitant]
     Indication: Dyspepsia
     Dosage: 1.3 MILLIGRAM, TID
     Route: 048
     Dates: start: 20220330, end: 20220828
  26. LEVOTHYROXINE SODIUM [Concomitant]
     Active Substance: LEVOTHYROXINE SODIUM
     Indication: Hypothyroidism
     Dosage: UNK UNK, QD
     Route: 048
     Dates: start: 20220422

REACTIONS (2)
  - Gastric ulcer [Recovering/Resolving]
  - Gastric ulcer [Recovering/Resolving]

NARRATIVE: CASE EVENT DATE: 20220701
